FAERS Safety Report 16198125 (Version 1)
Quarter: 2019Q2

REPORT INFORMATION
  Report Type: Spontaneous
  Country: HU (occurrence: HU)
  Receive Date: 20190415
  Receipt Date: 20190415
  Transmission Date: 20190711
  Serious: Yes (Disabling, Other)
  Sender: FDA-Public Use
  Company Number: HU-DSJP-DSJ-2019-112833

PATIENT

DRUGS (5)
  1. OFLOXACIN OTIC [Suspect]
     Active Substance: OFLOXACIN
     Indication: URINARY TRACT INFECTION
     Dosage: UNK
     Route: 065
  2. OFLOXACIN OTIC [Suspect]
     Active Substance: OFLOXACIN
     Indication: CAT SCRATCH DISEASE
  3. LEVOFLOXACIN. [Suspect]
     Active Substance: LEVOFLOXACIN
     Indication: URINARY TRACT INFECTION
     Dosage: UNK
     Route: 065
  4. CIPROFLOXACIN. [Suspect]
     Active Substance: CIPROFLOXACIN
     Indication: URINARY TRACT INFECTION
     Dosage: 500 MG, ONCE EVERY 12HR
     Route: 048
  5. CIPROFLOXACIN. [Suspect]
     Active Substance: CIPROFLOXACIN
     Indication: URINARY TRACT INFECTION
     Dosage: UNK
     Route: 065

REACTIONS (8)
  - Skin exfoliation [Not Recovered/Not Resolved]
  - Tendon pain [Recovered/Resolved]
  - Arrhythmia [Not Recovered/Not Resolved]
  - Purulence [Not Recovered/Not Resolved]
  - Asthma [Not Recovered/Not Resolved]
  - Hypertension [Not Recovered/Not Resolved]
  - Dermatitis [Not Recovered/Not Resolved]
  - Headache [Not Recovered/Not Resolved]

NARRATIVE: CASE EVENT DATE: 2012
